FAERS Safety Report 11972831 (Version 1)
Quarter: 2016Q1

REPORT INFORMATION
  Report Type: Spontaneous
  Country: CA (occurrence: CA)
  Receive Date: 20160128
  Receipt Date: 20160128
  Transmission Date: 20160526
  Serious: Yes (Hospitalization)
  Sender: FDA-Public Use
  Company Number: CA-TEVA-628501ACC

PATIENT
  Age: 12 Year
  Sex: Male
  Weight: 28 kg

DRUGS (2)
  1. CLONIDINE. [Suspect]
     Active Substance: CLONIDINE
     Indication: SOMATOTROPIN STIMULATION TEST
     Dosage: FREQUENCY: ONCE
     Route: 048
  2. ARGININE [Suspect]
     Active Substance: ARGININE
     Indication: SOMATOTROPIN STIMULATION TEST
     Dosage: FREQUENCY: ONCE
     Route: 042

REACTIONS (3)
  - Flank pain [Recovering/Resolving]
  - Chromaturia [Recovering/Resolving]
  - Haematuria [Recovering/Resolving]
